FAERS Safety Report 8429051-7 (Version None)
Quarter: 2012Q2

REPORT INFORMATION
  Report Type: 
  Country: None (occurrence: None)
  Receive Date: 20120612
  Receipt Date: 20120601
  Transmission Date: 20120825
  Serious: Yes (Hospitalization, Other)
  Sender: FDA-Public Use
  Company Number: CA-JNJFOC-20120205729

PATIENT
  Sex: Male
  Weight: 64 kg

DRUGS (5)
  1. SOLU-CORTEF [Concomitant]
     Indication: PREMEDICATION
     Dosage: 50 ML
     Route: 065
  2. REMICADE [Suspect]
     Route: 042
     Dates: start: 20120209
  3. REMICADE [Suspect]
     Route: 042
     Dates: start: 20090101
  4. REMICADE [Suspect]
     Indication: CROHN'S DISEASE
     Route: 042
     Dates: start: 20120112
  5. BENADRYL [Concomitant]
     Indication: PREMEDICATION
     Dosage: 50ML IVPB
     Route: 042

REACTIONS (3)
  - CROHN'S DISEASE [None]
  - PUBIC PAIN [None]
  - CYSTITIS [None]
